FAERS Safety Report 10816109 (Version 1)
Quarter: 2015Q1

REPORT INFORMATION
  Report Type: Report from Study
  Country: US (occurrence: US)
  Receive Date: 20150218
  Receipt Date: 20150218
  Transmission Date: 20150721
  Serious: No
  Sender: FDA-Public Use
  Company Number: US-ABBVIE-14K-163-1283972-00

PATIENT
  Age: 35 Year
  Sex: Female

DRUGS (3)
  1. HUMIRA [Suspect]
     Active Substance: ADALIMUMAB
     Indication: PSORIASIS
     Dates: start: 201308, end: 201311
  2. HUMIRA [Suspect]
     Active Substance: ADALIMUMAB
     Dates: start: 201311
  3. UNKNOWN MEDICATION [Concomitant]
     Active Substance: UNSPECIFIED INGREDIENT
     Indication: PRODUCT USED FOR UNKNOWN INDICATION

REACTIONS (2)
  - Product quality issue [Unknown]
  - Psoriasis [Recovered/Resolved]

NARRATIVE: CASE EVENT DATE: 201308
